FAERS Safety Report 19096179 (Version 1)
Quarter: 2021Q2

REPORT INFORMATION
  Report Type: Spontaneous
  Country: US (occurrence: US)
  Receive Date: 20210406
  Receipt Date: 20210406
  Transmission Date: 20210717
  Serious: No
  Sender: FDA-Public Use
  Company Number: US-DRREDDYS-USA/USA/21/0133513

PATIENT
  Age: 17 Year
  Sex: Male

DRUGS (1)
  1. ZENATANE [Suspect]
     Active Substance: ISOTRETINOIN
     Indication: PRODUCT USED FOR UNKNOWN INDICATION
     Dosage: 10/28/2020 9:59:58 AM,12/2/2020 9:16:07 AM,1/7/2021 10:36:53 AM,2/11/2021 1:01:07 PM
     Route: 048

REACTIONS (1)
  - Adverse drug reaction [Unknown]
